FAERS Safety Report 4358700-8 (Version None)
Quarter: 2004Q2

REPORT INFORMATION
  Report Type: 
  Country: None (occurrence: None)
  Receive Date: 20040511
  Receipt Date: 20040428
  Transmission Date: 20050107
  Serious: Yes (Hospitalization, Other)
  Sender: FDA-Public Use
  Company Number: 2004028910

PATIENT
  Age: 47 Year
  Sex: Male

DRUGS (5)
  1. NEURONTIN [Suspect]
     Indication: ILL-DEFINED DISORDER
     Dosage: 900 MG TID
  2. QUETIAPINE FUMARATE (QUETIAPINE FUMARATE) [Concomitant]
  3. TRAZODONE HCL [Concomitant]
  4. VENLAFAXINE HCL [Concomitant]
  5. ACETAMINOPHEN [Concomitant]

REACTIONS (1)
  - SUICIDE ATTEMPT [None]
